FAERS Safety Report 20222241 (Version 1)
Quarter: 2021Q4

REPORT INFORMATION
  Report Type: Spontaneous
  Country: US (occurrence: US)
  Receive Date: 20211223
  Receipt Date: 20211223
  Transmission Date: 20220303
  Serious: Yes (Hospitalization)
  Sender: FDA-Public Use
  Company Number: US-MYLANLABS-2021M1095421

PATIENT
  Age: 52 Year
  Sex: Male

DRUGS (3)
  1. NALOXONE [Suspect]
     Active Substance: NALOXONE
     Indication: Drug therapy
     Dosage: 0.8 MILLIGRAM
     Route: 030
  2. FENTANYL [Suspect]
     Active Substance: FENTANYL
     Indication: Product used for unknown indication
     Dosage: UNK
     Route: 065
  3. NALTREXONE [Concomitant]
     Active Substance: NALTREXONE
     Indication: Drug withdrawal maintenance therapy
     Dosage: UNK UNK, MONTHLY
     Route: 065
     Dates: start: 201708

REACTIONS (2)
  - Drug withdrawal syndrome [Unknown]
  - Drug abuse [Unknown]
